FAERS Safety Report 23128092 (Version 1)
Quarter: 2023Q4

REPORT INFORMATION
  Report Type: Other
  Country: FR (occurrence: FR)
  Receive Date: 20231031
  Receipt Date: 20231031
  Transmission Date: 20240110
  Serious: Yes (Hospitalization, Other)
  Sender: FDA-Public Use
  Company Number: None

PATIENT

DRUGS (5)
  1. TRAMADOL [Suspect]
     Active Substance: TRAMADOL\TRAMADOL HYDROCHLORIDE
     Indication: Pain
     Dosage: UNK
     Route: 048
  2. MANIDIPINE [Concomitant]
     Active Substance: MANIDIPINE
     Indication: Arrhythmia
     Dosage: 10 MILLIGRAM, QD
     Route: 048
  3. POTASSIUM CHLORIDE [Concomitant]
     Active Substance: POTASSIUM CHLORIDE
     Indication: Electrocardiogram QT prolonged
     Dosage: 6 DOSAGE FORM, QD
     Route: 048
  4. LIPTRUZET [Concomitant]
     Active Substance: ATORVASTATIN CALCIUM\EZETIMIBE
     Indication: Cardiovascular event prophylaxis
     Dosage: 1 DOSAGE FORM, QD
     Route: 048
  5. NADOLOL [Concomitant]
     Active Substance: NADOLOL
     Indication: Arrhythmia
     Dosage: 112 MILLIGRAM, QD
     Route: 048

REACTIONS (2)
  - Hyponatraemia [Recovering/Resolving]
  - Seizure [Recovered/Resolved]

NARRATIVE: CASE EVENT DATE: 20230921
